FAERS Safety Report 12189099 (Version 2)
Quarter: 2016Q2

REPORT INFORMATION
  Report Type: Spontaneous
  Country: JP (occurrence: JP)
  Receive Date: 20160317
  Receipt Date: 20160415
  Transmission Date: 20160815
  Serious: Yes (Death, Other)
  Sender: FDA-Public Use
  Company Number: JP-GILEAD-2016-0203059

PATIENT
  Age: 36 Year
  Sex: Male
  Weight: 68 kg

DRUGS (6)
  1. SENNOSIDE                          /00571901/ [Concomitant]
     Active Substance: SENNOSIDES A AND B
     Indication: CONSTIPATION
     Dosage: 24 MG, UNK
     Route: 048
  2. HARVONI [Suspect]
     Active Substance: LEDIPASVIR\SOFOSBUVIR
     Indication: CHRONIC HEPATITIS C
     Dosage: 1 DF, UNK
     Route: 048
     Dates: start: 20151120, end: 20160211
  3. TIOLA [Concomitant]
     Indication: CHRONIC HEPATITIS C
     Dosage: 300 MG, UNK
     Route: 048
     Dates: end: 20160211
  4. LEVOTOMIN                          /00038602/ [Concomitant]
     Active Substance: LEVOMEPROMAZINE
     Indication: SCHIZOPHRENIA
     Dosage: 75 MG, UNK
     Route: 048
  5. URSO [Concomitant]
     Active Substance: URSODIOL
     Indication: CHRONIC HEPATITIS C
     Dosage: 900 MG, UNK
     Route: 048
     Dates: end: 20160211
  6. RISPERIDONE. [Concomitant]
     Active Substance: RISPERIDONE
     Indication: SCHIZOPHRENIA
     Dosage: 9 MG, UNK
     Route: 048

REACTIONS (1)
  - Death [Fatal]

NARRATIVE: CASE EVENT DATE: 20160223
